FAERS Safety Report 14489774 (Version 2)
Quarter: 2018Q1

REPORT INFORMATION
  Report Type: Report from Study
  Country: US (occurrence: US)
  Receive Date: 20180205
  Receipt Date: 20180209
  Transmission Date: 20180509
  Serious: Yes (Other)
  Sender: FDA-Public Use
  Company Number: US-AMGEN-USASL2018012707

PATIENT
  Sex: Female

DRUGS (1)
  1. REPATHA [Suspect]
     Active Substance: EVOLOCUMAB
     Indication: PRODUCT USED FOR UNKNOWN INDICATION
     Dosage: 140 MG, Q2WK
     Route: 065

REACTIONS (9)
  - Musculoskeletal disorder [Recovered/Resolved]
  - Sinusitis [Not Recovered/Not Resolved]
  - Amnesia [Unknown]
  - Hypoaesthesia [Recovered/Resolved]
  - Hypertension [Unknown]
  - Anxiety [Unknown]
  - Influenza like illness [Unknown]
  - Back pain [Unknown]
  - Fall [Unknown]
